FAERS Safety Report 12543678 (Version 1)
Quarter: 2016Q3

REPORT INFORMATION
  Report Type: Spontaneous
  Country: US (occurrence: None)
  Receive Date: 20160708
  Receipt Date: 20160708
  Transmission Date: 20161109
  Serious: Yes (Hospitalization, Disabling)
  Sender: FDA-Public Use
  Company Number: None

PATIENT
  Age: 48 Year
  Sex: Female
  Weight: 83.92 kg

DRUGS (1)
  1. TOPIRAMATE 25 MG, 25 MG ASCENT PHARMACEUTICAL [Suspect]
     Active Substance: TOPIRAMATE
     Indication: MIGRAINE
     Route: 048
     Dates: start: 20150207, end: 20150214

REACTIONS (7)
  - Blindness [None]
  - Impaired driving ability [None]
  - Cataract [None]
  - Iris atrophy [None]
  - Angle closure glaucoma [None]
  - Headache [None]
  - Mydriasis [None]

NARRATIVE: CASE EVENT DATE: 20150215
